FAERS Safety Report 22329331 (Version 2)
Quarter: 2023Q2

REPORT INFORMATION
  Report Type: Spontaneous
  Country: US (occurrence: US)
  Receive Date: 20230517
  Receipt Date: 20230627
  Transmission Date: 20230722
  Serious: Yes (Other)
  Sender: FDA-Public Use
  Company Number: US-JNJFOC-20230519699

PATIENT
  Age: 22 Year
  Sex: Female
  Weight: 61 kg

DRUGS (10)
  1. SIMPONI ARIA [Suspect]
     Active Substance: GOLIMUMAB
     Indication: Psoriasis
     Dosage: 3 VIALS USED
     Route: 041
     Dates: start: 202008
  2. SIMPONI ARIA [Suspect]
     Active Substance: GOLIMUMAB
     Indication: Crohn^s disease
     Route: 041
     Dates: start: 20230505
  3. BENADRYL [Concomitant]
     Active Substance: DIPHENHYDRAMINE HYDROCHLORIDE
     Indication: Premedication
     Dosage: 30 MINUTES BEFORE THE INFUSION
     Route: 042
     Dates: start: 20230426
  4. ACETAMINOPHEN [Concomitant]
     Active Substance: ACETAMINOPHEN
     Route: 048
  5. ONDANSETRON [Concomitant]
     Active Substance: ONDANSETRON
     Indication: Premedication
     Route: 048
     Dates: start: 20230426
  6. FLUDROCORTISONE [Concomitant]
     Active Substance: FLUDROCORTISONE
     Route: 048
  7. LUTERA [Concomitant]
     Active Substance: ETHINYL ESTRADIOL\LEVONORGESTREL
     Dosage: 0.1 MG- 20 MG
     Route: 048
  8. ESCITALOPRAM [Concomitant]
     Active Substance: ESCITALOPRAM OXALATE
     Route: 048
  9. OMEPRAZOLE [Concomitant]
     Active Substance: OMEPRAZOLE
     Route: 048
  10. ZOLPIDEM [Concomitant]
     Active Substance: ZOLPIDEM TARTRATE
     Route: 048

REACTIONS (2)
  - Crohn^s disease [Recovered/Resolved]
  - Inappropriate schedule of product administration [Unknown]

NARRATIVE: CASE EVENT DATE: 20230426
